FAERS Safety Report 5692558-X (Version None)
Quarter: 2008Q2

REPORT INFORMATION
  Report Type: 
  Country: None (occurrence: None)
  Receive Date: 20080401
  Receipt Date: 20080319
  Transmission Date: 20081010
  Serious: Yes (Hospitalization)
  Sender: FDA-Public Use
  Company Number: 2007BI026393

PATIENT
  Age: 51 Year
  Sex: Male

DRUGS (14)
  1. TYSABRI [Suspect]
     Indication: MULTIPLE SCLEROSIS
     Dosage: 300 MG;QM;IV
     Route: 042
     Dates: start: 20070913, end: 20070101
  2. BACLOFEN [Concomitant]
  3. ZOLOFT [Concomitant]
  4. DETROL LA [Concomitant]
  5. ZOCOR [Concomitant]
  6. CARBATROL [Concomitant]
  7. DECADRON [Concomitant]
  8. FLOMAX [Concomitant]
  9. PLAVIX [Concomitant]
  10. ASPIRIN [Concomitant]
  11. COREG [Concomitant]
  12. LISINOPRIL [Concomitant]
  13. NIASPAN [Concomitant]
  14. NITROGLYCERIN (SUBLINGUAL) [Concomitant]

REACTIONS (4)
  - ACUTE MYOCARDIAL INFARCTION [None]
  - ASPARTATE AMINOTRANSFERASE INCREASED [None]
  - FATIGUE [None]
  - HAEMATOCRIT DECREASED [None]
